FAERS Safety Report 8814844 (Version 1)
Quarter: 2012Q4

REPORT INFORMATION
  Report Type: 
  Country: NL (occurrence: NL)
  Receive Date: 20120928
  Receipt Date: 20120928
  Transmission Date: 20130627
  Serious: Yes (Hospitalization)
  Sender: FDA-Public Use
  Company Number: NL-PFIZER INC-2012236190

PATIENT
  Age: 62 Year
  Sex: Female
  Weight: 62.5 kg

DRUGS (14)
  1. GENOTROPIN [Suspect]
     Indication: GROWTH HORMONE DEFICIENCY
     Dosage: 0.2 mg/day, 7 injections/week
     Route: 058
     Dates: start: 20070410
  2. LEVOTHYROXINE [Concomitant]
     Indication: BLOOD THYROID STIMULATING HORMONE DECREASED
     Dosage: UNK
     Dates: start: 19940201
  3. LEVOTHYROXINE [Concomitant]
     Indication: PRIMARY HYPOTHYROIDISM
  4. HYDROCORTISONE [Concomitant]
     Indication: BLOOD CORTICOTROPHIN DECREASED
     Dosage: UNK
     Dates: start: 19940201
  5. PROGESTERONE [Concomitant]
     Indication: BLOOD LUTEINISING HORMONE DECREASED
     Dosage: UNK
     Dates: start: 19940201
  6. PROGESTERONE [Concomitant]
     Indication: BLOOD FOLLICLE STIMULATING HORMONE DECREASED
  7. PROGESTERONE [Concomitant]
     Indication: HYPOGONADISM FEMALE
  8. DESMOPRESSIN [Concomitant]
     Indication: BLOOD ANTIDIURETIC HORMONE DECREASED
     Dosage: UNK
     Dates: start: 19950401
  9. MINIRIN [Concomitant]
     Indication: BLOOD ANTIDIURETIC HORMONE DECREASED
     Dosage: UNK
     Dates: start: 19960722
  10. DOXYCYCLINE [Concomitant]
     Indication: ACUTE SINUSITIS
     Dosage: UNK
     Dates: start: 19971120
  11. KLACID [Concomitant]
     Indication: ACUTE SINUSITIS
     Dosage: UNK
     Dates: start: 19971223
  12. MESTINON [Concomitant]
     Indication: MYASTHENIA GRAVIS
     Dosage: UNK
     Dates: start: 19980204
  13. THYRAX [Concomitant]
     Indication: BLOOD THYROID STIMULATING HORMONE DECREASED
     Dosage: UNK
     Dates: start: 19940201
  14. THYRAX [Concomitant]
     Indication: PRIMARY HYPOTHYROIDISM

REACTIONS (2)
  - Vomiting [Unknown]
  - Diarrhoea [Unknown]
